FAERS Safety Report 11852248 (Version 7)
Quarter: 2016Q2

REPORT INFORMATION
  Report Type: Report from Study
  Country: US (occurrence: US)
  Receive Date: 20151218
  Receipt Date: 20160624
  Transmission Date: 20160815
  Serious: Yes (Hospitalization)
  Sender: FDA-Public Use
  Company Number: US-ACTELION-A-NJ2015-128773

PATIENT
  Age: 53 Year
  Sex: Female

DRUGS (3)
  1. OPSUMIT [Suspect]
     Active Substance: MACITENTAN
     Indication: PULMONARY HYPERTENSION
     Dosage: 10 MG, QD
     Route: 048
     Dates: start: 20150227
  2. ADCIRCA [Concomitant]
     Active Substance: TADALAFIL
  3. TYVASO [Concomitant]
     Active Substance: TREPROSTINIL

REACTIONS (11)
  - Cyst [Unknown]
  - Overdose [Unknown]
  - Cough [Unknown]
  - Renal failure [Unknown]
  - Cellulitis [Unknown]
  - Gait disturbance [Unknown]
  - Joint injury [Unknown]
  - Furuncle [Unknown]
  - Oedema peripheral [Unknown]
  - Wound sepsis [Unknown]
  - Malaise [Unknown]
